FAERS Safety Report 9639440 (Version 2)
Quarter: 2013Q4

REPORT INFORMATION
  Report Type: Spontaneous
  Country: FR (occurrence: FR)
  Receive Date: 20131022
  Receipt Date: 20131105
  Transmission Date: 20140711
  Serious: Yes (Hospitalization, Other)
  Sender: FDA-Public Use
  Company Number: FR-PFIZER INC-2013295655

PATIENT
  Age: 56 Year
  Sex: Male

DRUGS (10)
  1. PIPERACILLIN/TAZOBACTAM [Concomitant]
     Dosage: UNK
     Dates: start: 20130711
  2. ARACYTINE [Suspect]
     Indication: CHEMOTHERAPY
     Dosage: 940 MG, CYCLIC (DAILY FROM DAY 1 TO DAY 3)
     Route: 042
     Dates: start: 20130726
  3. ARACYTINE [Suspect]
     Dosage: 1880 MG, CYCLIC (DAILY FROM DAY 8 TO DAY 10)
     Route: 042
     Dates: end: 20130804
  4. DAUNORUBICIN [Suspect]
     Dosage: 60 MG/M2, CYCLIC (113 MG FROM DAY 1 TO DAY 3)
     Route: 042
     Dates: start: 20130726
  5. DAUNORUBICIN [Suspect]
     Dosage: 35 MG/M2, CYCLIC (66 MG FROM DAY 8 TO DAY 9)
     Dates: end: 20130803
  6. LENOGRASTIM [Concomitant]
     Dosage: 5 UG/KG, CYCLIC (365 UG FROM DAY 1 TO DAY 10)
     Dates: start: 20130726
  7. SPIRAMYCIN [Concomitant]
     Dosage: UNK
     Dates: start: 20130711, end: 201308
  8. CASPOFUNGIN [Concomitant]
     Dosage: UNK
     Dates: start: 20130717, end: 20130721
  9. CASPOFUNGIN [Concomitant]
     Dosage: UNK
     Dates: start: 20130726
  10. IMIPENEM [Concomitant]

REACTIONS (3)
  - Myocarditis [Recovering/Resolving]
  - Neutropenic colitis [Unknown]
  - Bone marrow failure [Recovered/Resolved]
